FAERS Safety Report 21616524 (Version 1)
Quarter: 2022Q4

REPORT INFORMATION
  Report Type: Spontaneous
  Country: NL (occurrence: NL)
  Receive Date: 20221118
  Receipt Date: 20221118
  Transmission Date: 20230112
  Serious: Yes (Other)
  Sender: FDA-Public Use
  Company Number: None

PATIENT
  Sex: Male
  Weight: 80.3 kg

DRUGS (4)
  1. BUPROPION [Suspect]
     Active Substance: BUPROPION
     Indication: Attention deficit hyperactivity disorder
     Dosage: 7, BUPROPION TABLET MGA 150MG / BRAND NAME NOT SPECIFIED, THERAPY END DATE : ASKU
     Dates: start: 20080501
  2. ESOMEPRAZOLE [Concomitant]
     Active Substance: ESOMEPRAZOLE
     Indication: Product used for unknown indication
     Dosage: 20 MG (MILLIGRAM), ESOMEPRAZOL CAPSULE MSR 20MG / BRAND NAME NOT SPECIFIED, THERAPY START DATE : AS
  3. VERAPAMIL [Concomitant]
     Active Substance: VERAPAMIL HYDROCHLORIDE
     Indication: Product used for unknown indication
     Dosage: 120 MG (MILLIGRAM), STRENGTH : 120MG / BRAND NAME NOT SPECIFIED, THERAPY START DATE : ASKU , THERAPY
  4. DESLORATADINE [Concomitant]
     Active Substance: DESLORATADINE
     Indication: Product used for unknown indication
     Dosage: 5 MILLIGRAM DAILY; 5 MG 1 X A DAY, STRENGTH : 5MG / BRAND NAME NOT SPECIFIED, THERAPY START DATE : A

REACTIONS (4)
  - Epilepsy [Not Recovered/Not Resolved]
  - Decreased appetite [Unknown]
  - Rash [Unknown]
  - Insomnia [Unknown]
